FAERS Safety Report 7522628-2 (Version None)
Quarter: 2011Q2

REPORT INFORMATION
  Report Type: 
  Country: None (occurrence: None)
  Receive Date: 20110603
  Receipt Date: 20110512
  Transmission Date: 20111010
  Serious: Yes (Hospitalization)
  Sender: FDA-Public Use
  Company Number: JP-SANOFI-AVENTIS-2010SA077934

PATIENT
  Age: 54 Year
  Sex: Female
  Weight: 43 kg

DRUGS (32)
  1. FLUDARABINE PHOSPHATE [Suspect]
     Indication: STEM CELL TRANSPLANT
     Dosage: 42 MG ONCE
     Route: 065
     Dates: start: 20100314, end: 20100317
  2. LEVOFLOXACIN [Concomitant]
     Dates: start: 20100306, end: 20100422
  3. METHOTREXATE [Concomitant]
     Dates: start: 20100320, end: 20100330
  4. FILGRASTIM [Concomitant]
     Dates: start: 20100326, end: 20100405
  5. ANTI-THYMOCYTE GLOBULIN NOS [Suspect]
     Route: 042
     Dates: start: 20100312, end: 20100313
  6. REBAMIPIDE [Concomitant]
     Dates: start: 20100312
  7. ACYCLOVIR [Concomitant]
     Dates: start: 20100312, end: 20100625
  8. MAGNESIUM SULFATE [Concomitant]
     Dates: start: 20100322, end: 20100430
  9. FLUDARABINE PHOSPHATE [Suspect]
     Dosage: 42 MG ONCE
     Route: 065
     Dates: start: 20100314, end: 20100317
  10. TACROLIMUS [Concomitant]
     Dates: start: 20100318, end: 20110425
  11. RABEPRAZOLE SODIUM [Concomitant]
     Dates: start: 20100322
  12. PENTAMIDINE ISETHIONATE [Concomitant]
     Dates: start: 20100501, end: 20100501
  13. URSODIOL [Concomitant]
     Dates: start: 20100101, end: 20100620
  14. SULFAMETHOXAZOLE AND TRIMETHOPRIM [Concomitant]
     Dates: start: 20100607
  15. ACETAMINOPHEN [Concomitant]
     Dates: start: 20100312, end: 20100421
  16. METHYLPEDNISOLONE SODIUM SUCCINATE [Concomitant]
  17. GRANISETRON HCL [Concomitant]
     Dates: start: 20100310, end: 20100317
  18. PREDNISOLONE [Concomitant]
     Dates: start: 20100314, end: 20100317
  19. HYDROXYZINE HYDROCHLORIDE [Concomitant]
     Dates: start: 20100316, end: 20100319
  20. AMLODIPINE BESYLATE [Concomitant]
     Dates: start: 20100330
  21. CANDESARTAN CILEXETIL [Concomitant]
     Dates: start: 20100402, end: 20100415
  22. VOGLIBOSE [Concomitant]
     Dates: start: 20090408
  23. PLATELETS [Concomitant]
     Dates: start: 20090222, end: 20100414
  24. CHLORPHENIRAMINE MALEATE [Concomitant]
     Dates: start: 20100312, end: 20100312
  25. DILTIAZEM HCL [Concomitant]
     Dates: start: 20100319, end: 20100322
  26. NICARDIPINE HYDROCHLORIDE [Concomitant]
     Dates: start: 20100322, end: 20100402
  27. INSULIN HUMAN [Concomitant]
     Dates: start: 20100322, end: 20100406
  28. MICAFUNGIN SODIUM [Concomitant]
     Dates: start: 20100312, end: 20100329
  29. RED BLOOD CELLS, CONCENTRATED [Concomitant]
     Dates: start: 20090224, end: 20100405
  30. MESNA [Concomitant]
     Dates: start: 20100314, end: 20100317
  31. CYCLOPHOSPHAMIDE [Concomitant]
     Dates: start: 20100314, end: 20100317
  32. RANITIDINE HYDROCHLORIDE [Concomitant]
     Dates: start: 20100312, end: 20100312

REACTIONS (1)
  - LIVER DISORDER [None]
